FAERS Safety Report 5880978-X (Version None)
Quarter: 2008Q3

REPORT INFORMATION
  Report Type: 
  Country: None (occurrence: None)
  Receive Date: 20080912
  Receipt Date: 20080617
  Transmission Date: 20090109
  Serious: No
  Sender: FDA-Public Use
  Company Number: US-ABBOTT-08P-163-0457737-00

PATIENT
  Sex: Female
  Weight: 47.67 kg

DRUGS (8)
  1. HUMIRA [Suspect]
     Indication: CROHN'S DISEASE
     Route: 058
     Dates: start: 20080301
  2. CONJUGATED ESTROGENS [Suspect]
     Indication: DRUG USE FOR UNKNOWN INDICATION
     Dates: start: 19700101, end: 20080501
  3. CONJUGATED ESTROGENS [Suspect]
  4. CONJUGATED ESTROGENS [Suspect]
  5. METOPROLOL SUCCINATE [Concomitant]
     Indication: DRUG USE FOR UNKNOWN INDICATION
  6. WARFARIN SODIUM [Concomitant]
     Indication: DRUG USE FOR UNKNOWN INDICATION
  7. REPLEVIA [Concomitant]
     Indication: DRUG USE FOR UNKNOWN INDICATION
  8. ACETAMINOPHEN W/ PROPOXYPHENE HCL [Concomitant]
     Indication: PAIN

REACTIONS (6)
  - ALOPECIA [None]
  - BLOOD COUNT ABNORMAL [None]
  - GROIN PAIN [None]
  - HOT FLUSH [None]
  - SLEEP DISORDER [None]
  - WEIGHT DECREASED [None]
